FAERS Safety Report 9315548 (Version 1)
Quarter: 2013Q2

REPORT INFORMATION
  Report Type: Spontaneous
  Country: DE (occurrence: DE)
  Receive Date: 20130529
  Receipt Date: 20130529
  Transmission Date: 20140414
  Serious: Yes (Other)
  Sender: FDA-Public Use
  Company Number: DE-FRI-1000045453

PATIENT
  Sex: Male

DRUGS (5)
  1. MEMANTINE [Suspect]
     Dosage: 20 MG
     Route: 048
     Dates: start: 20130517, end: 20130517
  2. CARVEDILOL [Suspect]
     Dosage: 6.25 MG
     Route: 048
     Dates: start: 20130517, end: 20130517
  3. RAMIPRIL [Suspect]
     Dosage: 2.5 MG
     Route: 048
     Dates: start: 20130517, end: 20130517
  4. PANTOZOL [Suspect]
     Dosage: 40 MG
     Route: 048
     Dates: start: 20130517, end: 20130517
  5. PIPAMPERONE [Suspect]
     Dosage: 40 MG
     Route: 048
     Dates: start: 20130517, end: 20130517

REACTIONS (3)
  - Hypotension [Unknown]
  - Somnolence [Unknown]
  - Wrong drug administered [Unknown]
